FAERS Safety Report 5863449-6 (Version None)
Quarter: 2008Q3

REPORT INFORMATION
  Report Type: 
  Country: None (occurrence: None)
  Receive Date: 20080828
  Receipt Date: 20080821
  Transmission Date: 20090109
  Serious: Yes (Hospitalization)
  Sender: FDA-Public Use
  Company Number: JP-WYE-H05665608

PATIENT
  Age: 30 Year
  Sex: Female

DRUGS (2)
  1. PREMARIN [Suspect]
     Indication: OVARIAN CYST
     Dosage: 1.25MG/DAY
     Route: 048
  2. PREMARIN [Suspect]
     Indication: PROPHYLAXIS

REACTIONS (2)
  - DRUG INEFFECTIVE [None]
  - HAEMORRHAGIC OVARIAN CYST [None]
